FAERS Safety Report 23296351 (Version 1)
Quarter: 2023Q4

REPORT INFORMATION
  Report Type: Spontaneous
  Country: US (occurrence: US)
  Receive Date: 20231214
  Receipt Date: 20231214
  Transmission Date: 20240110
  Serious: Yes (Disabling, Other)
  Sender: FDA-Public Use
  Company Number: US-PFIZER INC-202300434629

PATIENT
  Age: 68 Year
  Sex: Female
  Weight: 58.97 kg

DRUGS (11)
  1. PAXLOVID [Interacting]
     Active Substance: NIRMATRELVIR\RITONAVIR
     Indication: COVID-19 treatment
     Dosage: 150MG/100MG 3 TABLETS TWICE A DAY
     Dates: start: 20231203, end: 20231204
  2. PAXLOVID [Interacting]
     Active Substance: NIRMATRELVIR\RITONAVIR
     Indication: Respiratory syncytial virus infection
  3. AMBIEN [Interacting]
     Active Substance: ZOLPIDEM TARTRATE
     Indication: Sleep disorder
     Dosage: UNK
  4. TRAZODONE [Interacting]
     Active Substance: TRAZODONE HYDROCHLORIDE
     Indication: Sleep disorder
     Dosage: 100MG TAKEN AT NIGHT TIME FOR SLEEP
  5. VYVANSE [Concomitant]
     Active Substance: LISDEXAMFETAMINE DIMESYLATE
     Indication: Attention deficit hyperactivity disorder
     Dosage: 30 MG
  6. SYNTHROID [Concomitant]
     Active Substance: LEVOTHYROXINE SODIUM
     Indication: Hypothyroidism
     Dosage: 50MCG ONCE A DAY
  7. CITALOPRAM [Concomitant]
     Active Substance: CITALOPRAM HYDROBROMIDE
     Indication: Depression
     Dosage: UNK
     Dates: end: 2017
  8. CITALOPRAM [Concomitant]
     Active Substance: CITALOPRAM HYDROBROMIDE
     Dosage: 40MG ONCE A DAY
  9. VIVENCIA [RIVASTIGMINE] [Concomitant]
     Indication: Attention deficit hyperactivity disorder
     Dosage: 3MG 1 TABLET A DAY
  10. VALACYCLOVIR [Concomitant]
     Active Substance: VALACYCLOVIR HYDROCHLORIDE
     Indication: Herpes virus infection
     Dosage: 1 G, DAILY
  11. ZITHROMAX [Concomitant]
     Active Substance: AZITHROMYCIN DIHYDRATE
     Dosage: UNK

REACTIONS (11)
  - Drug interaction [Unknown]
  - Sleep disorder [Unknown]
  - Malaise [Not Recovered/Not Resolved]
  - Formication [Unknown]
  - Insomnia [Unknown]
  - Mental disorder [Unknown]
  - Crying [Recovered/Resolved]
  - Emotional disorder [Unknown]
  - Panic attack [Recovered/Resolved]
  - Brain fog [Unknown]
  - Fatigue [Unknown]

NARRATIVE: CASE EVENT DATE: 20231201
